FAERS Safety Report 4735172-2 (Version None)
Quarter: 2005Q3

REPORT INFORMATION
  Report Type: 
  Country: None (occurrence: None)
  Receive Date: 20050804
  Receipt Date: 20050722
  Transmission Date: 20060218
  Serious: Yes (Other)
  Sender: FDA-Public Use
  Company Number: 2005106310

PATIENT
  Sex: Male
  Weight: 68.0396 kg

DRUGS (1)
  1. DILANTIN [Suspect]
     Indication: CONVULSION
     Dosage: 300 MG (1 IN 1 D), ORAL
     Route: 048

REACTIONS (4)
  - DRUG LEVEL BELOW THERAPEUTIC [None]
  - OCCUPATIONAL EXPOSURE TO TOXIC AGENT [None]
  - ORAL LICHEN PLANUS [None]
  - POOR QUALITY DRUG ADMINISTERED [None]
